FAERS Safety Report 6855968-0 (Version None)
Quarter: 2010Q3

REPORT INFORMATION
  Report Type: 
  Country: None (occurrence: None)
  Receive Date: 20100719
  Receipt Date: 20100707
  Transmission Date: 20110219
  Serious: Yes (Hospitalization)
  Sender: FDA-Public Use
  Company Number: JP-SANOFI-AVENTIS-2010SA041203

PATIENT
  Age: 73 Year
  Sex: Female

DRUGS (1)
  1. MYSLEE [Suspect]
     Route: 048

REACTIONS (3)
  - BLOOD GLUCOSE INCREASED [None]
  - SLEEP-RELATED EATING DISORDER [None]
  - SOMNAMBULISM [None]
